FAERS Safety Report 25779203 (Version 1)
Quarter: 2025Q3

REPORT INFORMATION
  Report Type: Spontaneous
  Country: US (occurrence: None)
  Receive Date: 20250909
  Receipt Date: 20250909
  Transmission Date: 20251021
  Serious: Yes (Death, Hospitalization)
  Sender: FDA-CTU
  Company Number: None

PATIENT
  Age: 61 Year
  Sex: Female
  Weight: 92.5 kg

DRUGS (2)
  1. CYCLOPHOSPHAMIDE [Suspect]
     Active Substance: CYCLOPHOSPHAMIDE
     Dates: end: 20250826
  2. DOXORUBICIN HYDROCHLORIDE [Suspect]
     Active Substance: DOXORUBICIN HYDROCHLORIDE
     Dates: end: 20250826

REACTIONS (9)
  - Sepsis [None]
  - Neutropenia [None]
  - Diarrhoea [None]
  - Vaginal haemorrhage [None]
  - Haematuria [None]
  - Unresponsive to stimuli [None]
  - Hypotension [None]
  - Bradycardia [None]
  - Pulse absent [None]

NARRATIVE: CASE EVENT DATE: 20250903
